FAERS Safety Report 16236059 (Version 1)
Quarter: 2019Q2

REPORT INFORMATION
  Report Type: Spontaneous
  Country: US (occurrence: US)
  Receive Date: 20190425
  Receipt Date: 20190425
  Transmission Date: 20190711
  Serious: No
  Sender: FDA-Public Use
  Company Number: US-ACCORD-109090

PATIENT
  Sex: Male

DRUGS (1)
  1. ATORVASTATIN ACCORD [Suspect]
     Active Substance: ATORVASTATIN
     Indication: PRODUCT USED FOR UNKNOWN INDICATION
     Dates: start: 20190215

REACTIONS (4)
  - Product taste abnormal [Unknown]
  - Wrong technique in product usage process [Unknown]
  - Product odour abnormal [Unknown]
  - Intentional dose omission [Unknown]
